FAERS Safety Report 8310740-X (Version None)
Quarter: 2012Q2

REPORT INFORMATION
  Report Type: 
  Country: None (occurrence: None)
  Receive Date: 20120425
  Receipt Date: 20120420
  Transmission Date: 20120825
  Serious: Yes (Death, Other)
  Sender: FDA-Public Use
  Company Number: JP-CELGENEUS-087-21880-10102476

PATIENT
  Sex: Female

DRUGS (18)
  1. KADIAN [Suspect]
     Indication: MULTIPLE MYELOMA
     Dosage: 20 MILLIGRAM
     Route: 048
     Dates: start: 20100915, end: 20101027
  2. INDOMETHACIN [Concomitant]
     Dosage: 25 GRAM
     Route: 041
     Dates: start: 20101109, end: 20101109
  3. DEXAMETHASONE ACETATE [Suspect]
     Indication: MULTIPLE MYELOMA
     Dosage: 40 MILLIGRAM
     Route: 048
     Dates: start: 20101015, end: 20101018
  4. ATELEC [Concomitant]
     Indication: HYPERTENSION
     Dosage: 5 MILLIGRAM
     Route: 048
     Dates: start: 20101005, end: 20101014
  5. LANSOPRAZOLE [Concomitant]
     Indication: PROPHYLAXIS
     Dosage: 15 MILLIGRAM
     Route: 048
     Dates: start: 20101014, end: 20101221
  6. REVLIMID [Suspect]
     Dosage: 15 MILLIGRAM
     Route: 048
     Dates: start: 20101104, end: 20101124
  7. ABILIFY [Concomitant]
     Dosage: 3 MILLIGRAM
     Route: 048
     Dates: start: 20101020, end: 20101122
  8. TECIPUL [Concomitant]
     Indication: MULTIPLE MYELOMA
     Dosage: 1 MILLIGRAM
     Route: 048
     Dates: start: 20100910, end: 20101103
  9. DEXAMETHASONE ACETATE [Suspect]
     Dosage: 40 MILLIGRAM
     Route: 048
     Dates: start: 20101023, end: 20101026
  10. ACETAMINOPHEN [Concomitant]
     Indication: PROPHYLAXIS
     Dosage: 400 MILLIGRAM
     Route: 048
     Dates: start: 20101023, end: 20101023
  11. VOLTAREN [Concomitant]
     Indication: MULTIPLE MYELOMA
     Dosage: 75 MILLIGRAM
     Route: 048
     Dates: start: 20100830, end: 20101020
  12. MUCOSTA [Concomitant]
     Indication: PROPHYLAXIS
     Dosage: 200 MILLIGRAM
     Route: 048
     Dates: start: 20100830, end: 20101103
  13. MAGNESIUM SULFATE [Concomitant]
     Dosage: 1980 MILLIGRAM
     Route: 048
     Dates: start: 20100302, end: 20101221
  14. REVLIMID [Suspect]
     Dosage: 25 MILLIGRAM
     Route: 048
     Dates: start: 20101202, end: 20101221
  15. DEXAMETHASONE ACETATE [Suspect]
     Dosage: 40 MILLIGRAM
     Route: 048
     Dates: start: 20101203, end: 20101221
  16. REVLIMID [Suspect]
     Indication: MULTIPLE MYELOMA
     Dosage: 15 MILLIGRAM
     Route: 048
     Dates: start: 20101007, end: 20101021
  17. DEXAMETHASONE ACETATE [Suspect]
     Dosage: 40 MILLIGRAM
     Route: 048
     Dates: start: 20101105, end: 20101124
  18. CANDESARTAN CILEXETIL [Concomitant]
     Indication: HYPERTENSION
     Dosage: 8 MILLIGRAM
     Route: 048
     Dates: start: 20101005, end: 20101014

REACTIONS (6)
  - PNEUMONIA [None]
  - DECREASED APPETITE [None]
  - PYREXIA [None]
  - HAEMOGLOBIN DECREASED [None]
  - SEPSIS [None]
  - NEUTROPHIL COUNT DECREASED [None]
